FAERS Safety Report 5573629-5 (Version None)
Quarter: 2007Q4

REPORT INFORMATION
  Report Type: 
  Country: None (occurrence: None)
  Receive Date: 20071226
  Receipt Date: 20071211
  Transmission Date: 20080405
  Serious: Yes (Hospitalization, Other)
  Sender: FDA-Public Use
  Company Number: JP-AMGEN-US257562

PATIENT
  Age: 74 Year
  Sex: Male

DRUGS (4)
  1. ENBREL [Suspect]
     Indication: RHEUMATOID ARTHRITIS
     Dosage: 25 MG, FREQUENCY UNSPECIFIED
     Route: 058
     Dates: start: 20070701, end: 20071201
  2. BUCILLAMINE [Suspect]
     Route: 065
  3. CORTICOSTEROID NOS [Suspect]
     Route: 065
  4. RHEUMATREX [Suspect]
     Dosage: UNSPECIFIED
     Route: 048

REACTIONS (1)
  - PNEUMOCYSTIS JIROVECI PNEUMONIA [None]
